FAERS Safety Report 8535712 (Version 9)
Quarter: 2016Q3

REPORT INFORMATION
  Report Type: Report from Study
  Country: CA (occurrence: CA)
  Receive Date: 20120430
  Receipt Date: 20160816
  Transmission Date: 20161109
  Serious: Yes (Other)
  Sender: FDA-Public Use
  Company Number: PHHY2012CA034520

PATIENT
  Age: 63 Year
  Sex: Female

DRUGS (3)
  1. SANDOSTATIN LAR DEPOT [Suspect]
     Active Substance: OCTREOTIDE ACETATE
     Indication: ACROMEGALY
     Dosage: 40 MG, QMO
     Route: 030
     Dates: start: 20100709
  2. SANDOSTATIN LAR DEPOT [Suspect]
     Active Substance: OCTREOTIDE ACETATE
     Dosage: 20 MG, QMO (EVERY 4 WEEKS)
     Route: 030
     Dates: end: 20120718
  3. SANDOSTATIN LAR DEPOT [Suspect]
     Active Substance: OCTREOTIDE ACETATE
     Dosage: UNK
     Route: 065
     Dates: start: 20160420

REACTIONS (15)
  - Productive cough [Unknown]
  - Blood pressure diastolic increased [Unknown]
  - Vertigo [Unknown]
  - Mass [Unknown]
  - Hyperhidrosis [Unknown]
  - Needle issue [Unknown]
  - Weight decreased [Unknown]
  - Dysphonia [Unknown]
  - Blood pressure increased [Unknown]
  - Labyrinthitis [Unknown]
  - Cough [Unknown]
  - Fatigue [Unknown]
  - Drug ineffective [Unknown]
  - Head discomfort [Unknown]
  - Nausea [Unknown]

NARRATIVE: CASE EVENT DATE: 20160219
